FAERS Safety Report 20500459 (Version 2)
Quarter: 2022Q1

REPORT INFORMATION
  Report Type: Report from Study
  Country: MX (occurrence: MX)
  Receive Date: 20220222
  Receipt Date: 20220328
  Transmission Date: 20220423
  Serious: Yes (Disabling, Other)
  Sender: FDA-Public Use
  Company Number: MX-NOVARTISPH-NVSC2022MX038969

PATIENT
  Sex: Female

DRUGS (3)
  1. TASIGNA [Suspect]
     Active Substance: NILOTINIB
     Indication: Chronic myeloid leukaemia
     Dosage: UNK
     Route: 048
     Dates: end: 202107
  2. TASIGNA [Suspect]
     Active Substance: NILOTINIB
     Dosage: 600 MG, (ONE MONTH AGO, SHE TAKES 2 CAPSULES IN THE MORNING AND 1 CAPSULE IN THE AFTERNOON)
     Route: 065
  3. DICLOFENAC [Concomitant]
     Active Substance: DICLOFENAC
     Indication: Product used for unknown indication
     Dosage: UNK
     Route: 065

REACTIONS (13)
  - Gait disturbance [Not Recovered/Not Resolved]
  - Neuropathy peripheral [Not Recovered/Not Resolved]
  - Angina pectoris [Unknown]
  - Diabetes mellitus [Unknown]
  - Fall [Not Recovered/Not Resolved]
  - Joint injury [Not Recovered/Not Resolved]
  - Stress [Not Recovered/Not Resolved]
  - Proctalgia [Unknown]
  - Intentional product misuse [Unknown]
  - Mobility decreased [Unknown]
  - Decompression sickness [Unknown]
  - Arthralgia [Unknown]
  - Pain [Unknown]
